FAERS Safety Report 21082396 (Version 2)
Quarter: 2022Q3

REPORT INFORMATION
  Report Type: Report from Study
  Country: CO (occurrence: CO)
  Receive Date: 20220714
  Receipt Date: 20220826
  Transmission Date: 20221027
  Serious: Yes (Other)
  Sender: FDA-Public Use
  Company Number: CO-BAYER-2022A095192

PATIENT
  Age: 75 Year
  Sex: Female

DRUGS (1)
  1. ADEMPAS [Suspect]
     Active Substance: RIOCIGUAT
     Indication: Pulmonary arterial hypertension
     Dosage: 1 DF, Q8HR
     Dates: start: 20211111

REACTIONS (3)
  - Upper limb fracture [Not Recovered/Not Resolved]
  - Hand fracture [None]
  - Fall [None]

NARRATIVE: CASE EVENT DATE: 20220703
